FAERS Safety Report 22541820 (Version 2)
Quarter: 2023Q2

REPORT INFORMATION
  Report Type: Spontaneous
  Country: JP (occurrence: JP)
  Receive Date: 20230609
  Receipt Date: 20230619
  Transmission Date: 20230722
  Serious: Yes (Hospitalization)
  Sender: FDA-Public Use
  Company Number: JP-ELI_LILLY_AND_COMPANY-JP202306000622

PATIENT
  Sex: Male

DRUGS (7)
  1. MOUNJARO [Suspect]
     Active Substance: TIRZEPATIDE
     Indication: Type 2 diabetes mellitus
     Dosage: 2.5 MG
     Route: 058
     Dates: start: 20230420, end: 20230518
  2. MOUNJARO [Suspect]
     Active Substance: TIRZEPATIDE
     Dosage: 5.0 MG
     Route: 058
     Dates: start: 20230519
  3. TOFOGLIFLOZIN [Concomitant]
     Active Substance: TOFOGLIFLOZIN
     Indication: Diabetes mellitus
     Dosage: 20 MG
     Route: 048
     Dates: start: 20210316, end: 20230518
  4. MITIGLINIDE CALCIUM HYDRATE\VOGLIBOSE [Concomitant]
     Active Substance: MITIGLINIDE CALCIUM HYDRATE\VOGLIBOSE
     Indication: Diabetes mellitus
     Dosage: 3 DOSAGE FORM, TID
     Route: 048
     Dates: start: 20161228, end: 20230518
  5. METFORMIN HYDROCHLORIDE\VILDAGLIPTIN [Concomitant]
     Active Substance: METFORMIN HYDROCHLORIDE\VILDAGLIPTIN
     Indication: Diabetes mellitus
     Dosage: 2 DOSAGE FORM, BID
     Route: 048
     Dates: start: 20160723, end: 20230419
  6. PRASUGREL HYDROCHLORIDE [Concomitant]
     Active Substance: PRASUGREL HYDROCHLORIDE
     Indication: Myocardial ischaemia
     Dosage: 3.75 MG, DAILY
     Route: 048
     Dates: start: 20210426
  7. FEBUXOSTAT [Concomitant]
     Active Substance: FEBUXOSTAT
     Indication: Hyperuricaemia
     Dosage: 20 MG, DAILY
     Route: 048
     Dates: start: 20210317

REACTIONS (1)
  - Cerebral infarction [Unknown]
